FAERS Safety Report 23498836 (Version 2)
Quarter: 2024Q2

REPORT INFORMATION
  Report Type: Report from Study
  Country: CO (occurrence: CO)
  Receive Date: 20240208
  Receipt Date: 20240418
  Transmission Date: 20240715
  Serious: Yes (Other)
  Sender: FDA-Public Use
  Company Number: CO-ABBVIE-5627400

PATIENT
  Age: 53 Year
  Sex: Female
  Weight: 78 kg

DRUGS (1)
  1. SKYRIZI [Suspect]
     Active Substance: RISANKIZUMAB-RZAA
     Indication: Psoriasis
     Dosage: FORM STRENGTH: 150  MILLIGRAM
     Route: 058
     Dates: start: 20230105, end: 20230905

REACTIONS (3)
  - Vaginal haemorrhage [Recovering/Resolving]
  - Vaginal haemorrhage [Recovered/Resolved]
  - Uterine leiomyoma [Unknown]

NARRATIVE: CASE EVENT DATE: 20231107
